FAERS Safety Report 18033201 (Version 1)
Quarter: 2020Q3

REPORT INFORMATION
  Report Type: Spontaneous
  Country: US (occurrence: US)
  Receive Date: 20200716
  Receipt Date: 20200716
  Transmission Date: 20201103
  Serious: No
  Sender: FDA-Public Use
  Company Number: US-WEST THERAPEUTIC DEVELOPMENT-2019WTD00002

PATIENT
  Sex: Female

DRUGS (1)
  1. LAZANDA [Suspect]
     Active Substance: FENTANYL CITRATE
     Indication: PLASMA CELL MYELOMA
     Dosage: 400 TO 500 ?G, EVERY 3 HOURS AS NEEDED
     Route: 045

REACTIONS (1)
  - Constipation [Not Recovered/Not Resolved]
